FAERS Safety Report 6187623-7 (Version None)
Quarter: 2009Q2

REPORT INFORMATION
  Report Type: 
  Country: None (occurrence: None)
  Receive Date: 20090511
  Receipt Date: 20090428
  Transmission Date: 20091009
  Serious: Yes (Hospitalization)
  Sender: FDA-Public Use
  Company Number: 000710

PATIENT
  Sex: Male
  Weight: 175.2 kg

DRUGS (14)
  1. ROTIGOTINE [Suspect]
     Indication: RESTLESS LEGS SYNDROME
     Dosage: 6 MG QD TRANSDERMAL, 4 MG QD TRANSDERMAL
     Route: 062
     Dates: start: 20070101, end: 20080101
  2. ROTIGOTINE [Suspect]
     Indication: RESTLESS LEGS SYNDROME
     Dosage: 6 MG QD TRANSDERMAL, 4 MG QD TRANSDERMAL
     Route: 062
     Dates: start: 20080101
  3. LISINOPRIL [Concomitant]
  4. TRIAMTERENE AND HYDROCHLOROTHIAZIDE [Concomitant]
  5. METOPROLOL [Concomitant]
  6. ARICEPT [Concomitant]
  7. LOVASTATIN [Concomitant]
  8. GABAPENTIN [Concomitant]
  9. NAPROXEN [Concomitant]
  10. VITAMIN D [Concomitant]
  11. MULTI-VITAMINS [Concomitant]
  12. FOLIC ACID [Concomitant]
  13. OXYCODONE HCL [Concomitant]
  14. VITAMIN B COMPLEX CAP [Concomitant]

REACTIONS (2)
  - CONCUSSION [None]
  - INSOMNIA [None]
